FAERS Safety Report 8390250-4 (Version None)
Quarter: 2012Q2

REPORT INFORMATION
  Report Type: 
  Country: None (occurrence: None)
  Receive Date: 20120529
  Receipt Date: 20120523
  Transmission Date: 20120825
  Serious: Yes (Other)
  Sender: FDA-Public Use
  Company Number: US-PFIZER INC-2012125812

PATIENT
  Sex: Male
  Weight: 97.959 kg

DRUGS (5)
  1. LAMICTAL [Concomitant]
     Dosage: UNK
  2. ZOLOFT [Concomitant]
     Dosage: 100 MG, UNK
  3. RISPERIDONE [Concomitant]
     Dosage: UNK
  4. LYRICA [Suspect]
     Indication: CONVULSION
     Dosage: UNK, 2X/DAY
     Dates: start: 20110824, end: 20120101
  5. CLONAZEPAM [Concomitant]
     Dosage: 0.5 MG, UNK

REACTIONS (4)
  - OPTIC NERVE INJURY [None]
  - EYE DISORDER [None]
  - VISUAL ACUITY REDUCED [None]
  - VISUAL IMPAIRMENT [None]
